FAERS Safety Report 8436513-5 (Version None)
Quarter: 2012Q2

REPORT INFORMATION
  Report Type: 
  Country: None (occurrence: None)
  Receive Date: 20120614
  Receipt Date: 20120611
  Transmission Date: 20120825
  Serious: Yes (Hospitalization)
  Sender: FDA-Public Use
  Company Number: JP-GLAXOSMITHKLINE-A0981001A

PATIENT
  Age: 14 Year
  Sex: Female

DRUGS (3)
  1. LAMOTRIGINE [Suspect]
     Indication: CONVULSION
     Route: 065
  2. KETAMINE HCL [Suspect]
     Indication: SEDATION
  3. MIDAZOLAM [Suspect]
     Indication: SEDATION

REACTIONS (21)
  - HUMAN HERPESVIRUS 6 INFECTION [None]
  - PYREXIA [None]
  - DRUG RASH WITH EOSINOPHILIA AND SYSTEMIC SYMPTOMS [None]
  - HYPERTHYROIDISM [None]
  - HEART RATE INCREASED [None]
  - ERYTHEMA [None]
  - EPSTEIN-BARR VIRUS INFECTION [None]
  - PAPULE [None]
  - LYMPHOCYTE MORPHOLOGY ABNORMAL [None]
  - BLOOD IMMUNOGLOBULIN G DECREASED [None]
  - JAUNDICE [None]
  - HYPOTHYROIDISM [None]
  - CYTOMEGALOVIRUS INFECTION [None]
  - RASH [None]
  - RESPIRATORY RATE INCREASED [None]
  - C-REACTIVE PROTEIN INCREASED [None]
  - HEPATIC FUNCTION ABNORMAL [None]
  - FACE OEDEMA [None]
  - CHAPPED LIPS [None]
  - WHITE BLOOD CELL COUNT INCREASED [None]
  - NERVOUS SYSTEM DISORDER [None]
